FAERS Safety Report 9722974 (Version 1)
Quarter: 2013Q4

REPORT INFORMATION
  Report Type: Spontaneous
  Country: US (occurrence: None)
  Receive Date: 20131127
  Receipt Date: 20131127
  Transmission Date: 20140711
  Serious: Yes (Disabling)
  Sender: FDA-Public Use
  Company Number: None

PATIENT
  Age: 50 Year
  Sex: Female
  Weight: 46.72 kg

DRUGS (1)
  1. BETASERON [Suspect]
     Indication: MULTIPLE SCLEROSIS
     Dosage: PRE-FILLED SYRINGE, EVERY OTHER DAY, GIVEN INTO/ UNDER THE SKIN
     Dates: start: 19950808, end: 20131008

REACTIONS (3)
  - Local swelling [None]
  - Diastolic dysfunction [None]
  - Cardiac failure congestive [None]
